FAERS Safety Report 11081134 (Version 2)
Quarter: 2015Q2

REPORT INFORMATION
  Report Type: Spontaneous
  Country: IT (occurrence: IT)
  Receive Date: 20150501
  Receipt Date: 20150526
  Transmission Date: 20150821
  Serious: Yes (Hospitalization)
  Sender: FDA-Public Use
  Company Number: IT-SUN PHARMACEUTICAL INDUSTRIES LTD-2015RR-96560

PATIENT
  Age: 46 Year
  Sex: Female

DRUGS (6)
  1. VENLAFAXINE [Suspect]
     Active Substance: VENLAFAXINE HYDROCHLORIDE
     Indication: PRODUCT USED FOR UNKNOWN INDICATION
     Dosage: 4.5 G, TOTAL
     Route: 048
     Dates: start: 20150312, end: 20150312
  2. HALDOL [Suspect]
     Active Substance: HALOPERIDOL
     Indication: PRODUCT USED FOR UNKNOWN INDICATION
     Dosage: 30 ML TOTAL
     Route: 048
     Dates: start: 20150312, end: 20150312
  3. AUGMENTIN [Suspect]
     Active Substance: AMOXICILLIN\CLAVULANATE POTASSIUM
     Indication: PRODUCT USED FOR UNKNOWN INDICATION
     Dosage: 6 G TOTAL
     Route: 048
     Dates: start: 20150312, end: 20150312
  4. TAVOR [Suspect]
     Active Substance: LORAZEPAM
     Indication: PRODUCT USED FOR UNKNOWN INDICATION
     Dosage: 8 MG TOTAL
     Route: 048
     Dates: start: 20150312, end: 20150312
  5. DEPAKENE [Suspect]
     Active Substance: VALPROIC ACID
     Indication: PRODUCT USED FOR UNKNOWN INDICATION
     Dosage: 3 G TOTAL
     Route: 048
     Dates: start: 20150312, end: 20150312
  6. SERENASE [Suspect]
     Active Substance: HALOPERIDOL
     Indication: PRODUCT USED FOR UNKNOWN INDICATION
     Dosage: 10 ML TOTAL
     Route: 048
     Dates: start: 20150312, end: 20150312

REACTIONS (2)
  - Self injurious behaviour [Recovered/Resolved]
  - Drug abuse [None]

NARRATIVE: CASE EVENT DATE: 20150312
